FAERS Safety Report 10161653 (Version 22)
Quarter: 2015Q2

REPORT INFORMATION
  Report Type: Report from Study
  Country: CA (occurrence: CA)
  Receive Date: 20140509
  Receipt Date: 20150505
  Transmission Date: 20150821
  Serious: Yes (Hospitalization, Other)
  Sender: FDA-Public Use
  Company Number: CA-ROCHE-1231368

PATIENT
  Age: 50 Year
  Sex: Female

DRUGS (13)
  1. AVASTIN [Suspect]
     Active Substance: BEVACIZUMAB
     Route: 042
     Dates: start: 20141022
  2. AVASTIN [Suspect]
     Active Substance: BEVACIZUMAB
     Route: 042
     Dates: start: 20141119
  3. AVASTIN [Suspect]
     Active Substance: BEVACIZUMAB
     Indication: NON-SMALL CELL LUNG CANCER STAGE IV
     Route: 042
     Dates: start: 20120823
  4. BENADRYL [Suspect]
     Active Substance: DIPHENHYDRAMINE HYDROCHLORIDE
     Indication: PRODUCT USED FOR UNKNOWN INDICATION
     Route: 065
  5. MORPHINE [Concomitant]
     Active Substance: MORPHINE
  6. AVASTIN [Suspect]
     Active Substance: BEVACIZUMAB
     Route: 042
     Dates: start: 20140108
  7. AVASTIN [Suspect]
     Active Substance: BEVACIZUMAB
     Route: 042
     Dates: start: 20140709
  8. LORAZEPAM. [Suspect]
     Active Substance: LORAZEPAM
     Indication: PRODUCT USED FOR UNKNOWN INDICATION
     Route: 065
  9. AVASTIN [Suspect]
     Active Substance: BEVACIZUMAB
     Route: 042
     Dates: start: 20150401, end: 20150401
  10. ALIMTA [Concomitant]
     Active Substance: PEMETREXED DISODIUM
  11. AVASTIN [Suspect]
     Active Substance: BEVACIZUMAB
     Route: 042
     Dates: start: 20140730
  12. AVASTIN [Suspect]
     Active Substance: BEVACIZUMAB
     Route: 042
     Dates: start: 20150401
  13. DOCETAXOL [Suspect]
     Active Substance: DOCETAXEL
     Indication: PRODUCT USED FOR UNKNOWN INDICATION
     Route: 065

REACTIONS (26)
  - Hypotension [Unknown]
  - Vascular pain [Recovered/Resolved]
  - Erythema [Unknown]
  - Asthenia [Not Recovered/Not Resolved]
  - Muscle atrophy [Not Recovered/Not Resolved]
  - Dry mouth [Unknown]
  - Dysgeusia [Unknown]
  - Drug ineffective [Unknown]
  - Blood potassium decreased [Unknown]
  - Dehydration [Unknown]
  - Metastatic neoplasm [Not Recovered/Not Resolved]
  - Heart rate increased [Unknown]
  - Device intolerance [Not Recovered/Not Resolved]
  - Catheter site infection [Unknown]
  - Candida infection [Unknown]
  - Movement disorder [Not Recovered/Not Resolved]
  - Fatigue [Recovering/Resolving]
  - Infusion site pain [Unknown]
  - Infusion related reaction [Unknown]
  - Wound [Recovering/Resolving]
  - Gingival bleeding [Unknown]
  - White blood cell count decreased [Unknown]
  - Device related infection [Unknown]
  - Pain [Recovering/Resolving]
  - Heart rate increased [Unknown]
  - Urinary tract infection [Recovered/Resolved]

NARRATIVE: CASE EVENT DATE: 20130918
